FAERS Safety Report 12156244 (Version 2)
Quarter: 2016Q1

REPORT INFORMATION
  Report Type: Spontaneous
  Country: DE (occurrence: DE)
  Receive Date: 20160307
  Receipt Date: 20160318
  Transmission Date: 20160526
  Serious: Yes (Hospitalization)
  Sender: FDA-Public Use
  Company Number: DE-MYLANLABS-2016M1008636

PATIENT

DRUGS (1)
  1. MTX-DURA 7,5 MG/ML INJEKTIONSL?SUNG [Suspect]
     Active Substance: METHOTREXATE SODIUM
     Indication: PSORIASIS
     Dosage: SOLUITON FOR INJECTION 7.5 MG/ML PRE-FILLED SYRINGE
     Route: 058
     Dates: start: 20100425, end: 20151026

REACTIONS (1)
  - Lung adenocarcinoma stage I [Recovered/Resolved with Sequelae]

NARRATIVE: CASE EVENT DATE: 20151118
